FAERS Safety Report 11855148 (Version 1)
Quarter: 2015Q4

REPORT INFORMATION
  Report Type: Spontaneous
  Country: US (occurrence: None)
  Receive Date: 20151218
  Receipt Date: 20151218
  Transmission Date: 20160305
  Serious: Yes (Disabling)
  Sender: FDA-Public Use
  Company Number: None

PATIENT
  Age: 62 Year
  Sex: Female
  Weight: 63.5 kg

DRUGS (2)
  1. ABILIFY [Suspect]
     Active Substance: ARIPIPRAZOLE
     Indication: DEPRESSION
     Dosage: 10MG  ONE TAB DAILY  P.O.
     Route: 048
     Dates: start: 20081210, end: 20140630
  2. ABILIFY [Suspect]
     Active Substance: ARIPIPRAZOLE
     Indication: ANXIETY
     Dosage: 10MG  ONE TAB DAILY  P.O.
     Route: 048
     Dates: start: 20081210, end: 20140630

REACTIONS (4)
  - Tardive dyskinesia [None]
  - Headache [None]
  - Pain in jaw [None]
  - Stomatitis [None]

NARRATIVE: CASE EVENT DATE: 201406
